FAERS Safety Report 5678667-X (Version None)
Quarter: 2008Q1

REPORT INFORMATION
  Report Type: 
  Country: None (occurrence: None)
  Receive Date: 20080320
  Receipt Date: 20080311
  Transmission Date: 20080703
  Serious: Yes (Other)
  Sender: FDA-Public Use
  Company Number: 2008-01788

PATIENT
  Age: 34 Year
  Sex: Male

DRUGS (6)
  1. PREDNISOLONE [Suspect]
     Indication: POSTOPERATIVE CARE
     Dosage: 5 MG, DAILY,
     Dates: start: 20030701
  2. PREDNISOLONE [Suspect]
     Indication: RENAL TRANSPLANT
     Dosage: 5 MG, DAILY,
     Dates: start: 20030701
  3. TACROLIMUS [Suspect]
     Indication: POSTOPERATIVE CARE
     Dosage: 0.1 MG/KG, DAILY
  4. TACROLIMUS [Suspect]
     Indication: RENAL TRANSPLANT
     Dosage: 0.1 MG/KG, DAILY
  5. IMURAN [Suspect]
     Indication: POSTOPERATIVE CARE
     Dosage: 1.5 MG/KG, DAILY
  6. IMURAN [Suspect]
     Indication: RENAL TRANSPLANT
     Dosage: 1.5 MG/KG, DAILY

REACTIONS (2)
  - PERITONEAL DIALYSIS [None]
  - URETERIC CANCER [None]
